FAERS Safety Report 5174346-6 (Version None)
Quarter: 2006Q4

REPORT INFORMATION
  Report Type: 
  Country: None (occurrence: None)
  Receive Date: 20061206
  Receipt Date: 20061128
  Transmission Date: 20070319
  Serious: Yes (Death, Hospitalization, Other)
  Sender: FDA-Public Use
  Company Number: 163-21880-06090666

PATIENT
  Age: 69 Year
  Sex: Male
  Weight: 89.8122 kg

DRUGS (11)
  1. REVLIMID [Suspect]
     Indication: MULTIPLE MYELOMA
     Dosage: SEE IMAGE
     Route: 048
     Dates: start: 20060711
  2. REVLIMID [Suspect]
     Indication: MULTIPLE MYELOMA
     Dosage: SEE IMAGE
     Route: 048
     Dates: start: 20060711
  3. DEXAMETHASONE TAB [Suspect]
     Indication: MULTIPLE MYELOMA
     Dates: start: 20050101, end: 20061023
  4. LASIX [Concomitant]
  5. SENOKOT [Concomitant]
  6. TYLENOL [Concomitant]
  7. POTASSIUM CHLORIDE [Concomitant]
  8. AMBIEN [Concomitant]
  9. MILK OF MAGNESIA TAB [Concomitant]
  10. PROTONIX [Concomitant]
  11. ASPIRIN [Concomitant]

REACTIONS (15)
  - ASTHENIA [None]
  - ATELECTASIS [None]
  - BLOOD PRESSURE SYSTOLIC INCREASED [None]
  - BONE PAIN [None]
  - CARDIAC FAILURE CONGESTIVE [None]
  - CONDITION AGGRAVATED [None]
  - MALIGNANT NEOPLASM PROGRESSION [None]
  - MULTIPLE MYELOMA [None]
  - PAIN [None]
  - PANCYTOPENIA [None]
  - PATHOLOGICAL FRACTURE [None]
  - PLEURAL EFFUSION [None]
  - PNEUMONIA [None]
  - RESPIRATORY FAILURE [None]
  - SCOLIOSIS [None]
